FAERS Safety Report 7042621-6 (Version None)
Quarter: 2010Q4

REPORT INFORMATION
  Report Type: 
  Country: None (occurrence: None)
  Receive Date: 20101013
  Receipt Date: 20101005
  Transmission Date: 20110411
  Serious: Yes (Other)
  Sender: FDA-Public Use
  Company Number: DE-B.I. PHARMACEUTICALS,INC./RIDGEFIELD-2010-DE-05543DE

PATIENT
  Sex: Male

DRUGS (3)
  1. VIRAMUNE [Suspect]
     Indication: HIV INFECTION
     Route: 048
     Dates: start: 19990701, end: 20100920
  2. CBV [Concomitant]
     Indication: HIV INFECTION
     Dates: start: 19990701, end: 20100920
  3. MARCUMAR [Concomitant]
     Indication: HIV INFECTION
     Dates: start: 20070601

REACTIONS (2)
  - SYPHILIS [None]
  - VENOUS THROMBOSIS [None]
